FAERS Safety Report 19771836 (Version 3)
Quarter: 2021Q4

REPORT INFORMATION
  Report Type: Spontaneous
  Country: US (occurrence: US)
  Receive Date: 20210901
  Receipt Date: 20211015
  Transmission Date: 20220303
  Serious: Yes (Other)
  Sender: FDA-Public Use
  Company Number: US-GLOBAL BLOOD THERAPEUTICS INC-US-GBT-21-02755

PATIENT
  Age: 31 Year
  Sex: Female

DRUGS (6)
  1. OXBRYTA [Suspect]
     Active Substance: VOXELOTOR
     Indication: Sickle cell disease
     Route: 048
     Dates: start: 20210526, end: 2021
  2. DESFERAL [Suspect]
     Active Substance: DEFEROXAMINE MESYLATE
     Indication: Product used for unknown indication
     Dosage: INFUSION, MONDAY/WEDNESDAY AND FRIDAY
  3. ELIQUIS [Concomitant]
     Active Substance: APIXABAN
     Indication: Product used for unknown indication
     Dosage: NOT PROVIDED
  4. DEFERIPRONE [Concomitant]
     Active Substance: DEFERIPRONE
     Indication: Product used for unknown indication
  5. ERGOCALCIFEROL [Concomitant]
     Active Substance: ERGOCALCIFEROL
     Indication: Product used for unknown indication
     Dosage: 50000 UNITS
  6. DEFEROXAMINE [Concomitant]
     Active Substance: DEFEROXAMINE MESYLATE
     Indication: Product used for unknown indication
     Dosage: DGM, M -} F
     Route: 058

REACTIONS (2)
  - Blood stem cell harvest [Recovered/Resolved]
  - Infusion site irritation [Recovered/Resolved]

NARRATIVE: CASE EVENT DATE: 20211006
